FAERS Safety Report 8415231-3 (Version None)
Quarter: 2012Q2

REPORT INFORMATION
  Report Type: 
  Country: None (occurrence: None)
  Receive Date: 20120530
  Receipt Date: 20120525
  Transmission Date: 20120825
  Serious: Yes (Hospitalization, Other)
  Sender: FDA-Public Use
  Company Number: ADR-2012-00553

PATIENT
  Sex: Male

DRUGS (1)
  1. LIORESAL [Suspect]
     Indication: MUSCLE SPASTICITY

REACTIONS (5)
  - PNEUMOPERITONEUM [None]
  - OSTEONECROSIS [None]
  - DEVICE EXTRUSION [None]
  - IMPLANT SITE EROSION [None]
  - DRUG WITHDRAWAL SYNDROME [None]
